FAERS Safety Report 6264116-X (Version None)
Quarter: 2009Q3

REPORT INFORMATION
  Report Type: 
  Country: None (occurrence: None)
  Receive Date: 20090710
  Receipt Date: 20090708
  Transmission Date: 20100115
  Serious: Yes (Life-Threatening)
  Sender: FDA-Public Use
  Company Number: JP-AVENTIS-200911918JP

PATIENT
  Age: 84 Year
  Sex: Male

DRUGS (12)
  1. AMARYL [Suspect]
     Route: 048
     Dates: start: 20061218
  2. HERBESSER R [Suspect]
     Indication: HYPERTENSION
     Route: 048
     Dates: start: 20090406, end: 20090408
  3. OLMETEC [Suspect]
     Route: 048
     Dates: start: 20061218
  4. CALBLOCK [Suspect]
     Route: 048
     Dates: start: 20061218
  5. TAKEPRON [Suspect]
     Route: 048
     Dates: start: 20061218
  6. ATELEC [Suspect]
     Route: 048
     Dates: start: 20070115
  7. BASEN [Suspect]
     Route: 048
     Dates: start: 20070730
  8. ARTIST [Suspect]
     Route: 048
     Dates: start: 20080512
  9. ARTIST [Suspect]
     Route: 048
     Dates: start: 20080922, end: 20090408
  10. ACTOS [Suspect]
     Route: 048
     Dates: start: 20080922
  11. NATRIX [Suspect]
     Route: 048
     Dates: start: 20081208
  12. IRRIBOW [Suspect]
     Dosage: DOSE: 5 MCG/DAY
     Route: 048
     Dates: start: 20090216

REACTIONS (4)
  - BLOOD PRESSURE DECREASED [None]
  - BRADYCARDIA [None]
  - DEPRESSED LEVEL OF CONSCIOUSNESS [None]
  - HYPERKALAEMIA [None]
